FAERS Safety Report 8743221 (Version 2)
Quarter: 2012Q4

REPORT INFORMATION
  Report Type: 
  Country: US (occurrence: US)
  Receive Date: 20120824
  Receipt Date: 20120928
  Transmission Date: 20130627
  Serious: Yes (Congenital Anomaly)
  Sender: FDA-Public Use
  Company Number: US-GLAXOSMITHKLINE-A0990793A

PATIENT
  Age: 0 Year
  Sex: Male

DRUGS (2)
  1. PAXIL CR [Suspect]
     Indication: PRODUCT USED FOR UNKNOWN INDICATION
     Dosage: 12.5MG Per day
     Route: 064
  2. PRENATAL VITAMIN [Concomitant]

REACTIONS (5)
  - Hydrocele [Unknown]
  - Cryptorchism [Unknown]
  - Heart disease congenital [Unknown]
  - Aortic valve disease [Unknown]
  - Foetal exposure during pregnancy [Unknown]
